FAERS Safety Report 4596100-6 (Version None)
Quarter: 2005Q1

REPORT INFORMATION
  Report Type: 
  Country: None (occurrence: None)
  Receive Date: 20050225
  Receipt Date: 20050215
  Transmission Date: 20050727
  Serious: Yes (Hospitalization)
  Sender: FDA-Public Use
  Company Number: 2004AP05859

PATIENT
  Age: 57 Year
  Sex: Male

DRUGS (5)
  1. IRESSA [Suspect]
     Indication: NON-SMALL CELL LUNG CANCER
     Dosage: 250 MG DAILY PO
     Route: 048
     Dates: start: 20041013, end: 20041110
  2. IRESSA [Suspect]
     Indication: NON-SMALL CELL LUNG CANCER
     Dosage: 250 MG DAILY PO
     Route: 048
     Dates: start: 20041119, end: 20041202
  3. CORTRIL [Concomitant]
  4. CARBOPLATIN [Concomitant]
  5. PACLITAXEL [Concomitant]

REACTIONS (12)
  - ADRENAL INSUFFICIENCY [None]
  - ANOREXIA [None]
  - BLOOD ALKALINE PHOSPHATASE INCREASED [None]
  - CONDITION AGGRAVATED [None]
  - DIARRHOEA [None]
  - HEPATIC FUNCTION ABNORMAL [None]
  - HYPONATRAEMIA [None]
  - MALAISE [None]
  - NASOPHARYNGITIS [None]
  - NAUSEA [None]
  - PRURITUS [None]
  - RASH [None]
